FAERS Safety Report 7907809-8 (Version None)
Quarter: 2011Q4

REPORT INFORMATION
  Report Type: 
  Country: None (occurrence: None)
  Receive Date: 20111110
  Receipt Date: 20111109
  Transmission Date: 20120403
  Serious: Yes (Other)
  Sender: FDA-Public Use
  Company Number: US-PFIZER INC-2011274704

PATIENT
  Sex: Female
  Weight: 68.03 kg

DRUGS (5)
  1. LIPITOR [Concomitant]
     Indication: BLOOD CHOLESTEROL INCREASED
     Dosage: 40 MG, DAILY
  2. PRISTIQ [Suspect]
     Indication: ANXIETY
     Dosage: 50 MG, DAILY
     Dates: start: 20111001, end: 20111106
  3. PRISTIQ [Suspect]
     Indication: DEPRESSION
  4. PAXIL [Concomitant]
     Indication: DEPRESSION
  5. PAXIL [Concomitant]
     Indication: ANXIETY
     Dosage: UNK
     Dates: start: 19980101, end: 20111001

REACTIONS (11)
  - IRRITABILITY [None]
  - NAUSEA [None]
  - DIZZINESS [None]
  - ANXIETY [None]
  - IMPAIRED DRIVING ABILITY [None]
  - AMNESIA [None]
  - RESTLESS LEGS SYNDROME [None]
  - TINNITUS [None]
  - ANGER [None]
  - INSOMNIA [None]
  - HEADACHE [None]
